FAERS Safety Report 17057011 (Version 1)
Quarter: 2019Q4

REPORT INFORMATION
  Report Type: Report from Study
  Country: CO (occurrence: CO)
  Receive Date: 20191121
  Receipt Date: 20191121
  Transmission Date: 20200122
  Serious: Yes (Hospitalization, Other)
  Sender: FDA-Public Use
  Company Number: CO-ROCHE-2455160

PATIENT
  Sex: Male

DRUGS (1)
  1. MABTHERA [Suspect]
     Active Substance: RITUXIMAB
     Indication: PRODUCT USED FOR UNKNOWN INDICATION
     Route: 065

REACTIONS (11)
  - Cerebral disorder [Unknown]
  - Blindness [Unknown]
  - Feeling abnormal [Unknown]
  - Lung disorder [Unknown]
  - Delirium [Unknown]
  - General physical health deterioration [Unknown]
  - Delusion [Unknown]
  - Discomfort [Unknown]
  - Mobility decreased [Unknown]
  - Malaise [Unknown]
  - Deafness [Unknown]
